FAERS Safety Report 8830262 (Version 1)
Quarter: 2012Q4

REPORT INFORMATION
  Report Type: 
  Country: ES (occurrence: ES)
  Receive Date: 20121009
  Receipt Date: 20121009
  Transmission Date: 20130627
  Serious: Yes (Hospitalization)
  Sender: FDA-Public Use
  Company Number: ES-PFIZER INC-2012248271

PATIENT
  Age: 68 Year
  Sex: Male

DRUGS (6)
  1. TYGACIL [Suspect]
     Indication: POSTOPERATIVE WOUND INFECTION
     Dosage: 50 mg, 2x/day
     Route: 042
     Dates: start: 20111229, end: 20120121
  2. CIPROFLOXACIN HCL [Suspect]
     Indication: POSTOPERATIVE WOUND INFECTION
     Dosage: 400 mg, 3x/day
     Route: 042
     Dates: start: 20111229, end: 20120121
  3. ENOXAPARIN [Concomitant]
     Indication: PROPHYLAXIS
     Dosage: 40 mg, 1x/day
     Route: 058
     Dates: start: 20111227, end: 20120105
  4. ESOMEPRAZOLE [Concomitant]
     Indication: PROPHYLAXIS
     Dosage: UNK
     Dates: start: 20111230, end: 20120105
  5. LEVOTHYROXINE [Concomitant]
     Indication: HYPOTHYROIDISM
     Dosage: 50 ug, 1x/day
     Route: 048
     Dates: start: 20111229, end: 20120105
  6. LORAZEPAM [Concomitant]
     Indication: INSOMNIA
     Dosage: 1 mg, 1x/day
     Route: 048
     Dates: start: 20111217

REACTIONS (1)
  - Hepatitis cholestatic [Recovered/Resolved]
